FAERS Safety Report 12339154 (Version 2)
Quarter: 2016Q3

REPORT INFORMATION
  Report Type: Spontaneous
  Country: IT (occurrence: IT)
  Receive Date: 20160505
  Receipt Date: 20160909
  Transmission Date: 20161109
  Serious: Yes (Life-Threatening, Other)
  Sender: FDA-Public Use
  Company Number: IT-GLAXOSMITHKLINE-IT2016GSK061866

PATIENT
  Age: 64 Year
  Sex: Male

DRUGS (3)
  1. IBUPROFENE [Suspect]
     Active Substance: IBUPROFEN
     Indication: BACK PAIN
     Dosage: UNK
  2. LOPRESSOR [Concomitant]
     Active Substance: METOPROLOL TARTRATE
     Indication: PRODUCT USED FOR UNKNOWN INDICATION
     Dosage: 25 MG, UNK
  3. VOLTAREN [Suspect]
     Active Substance: DICLOFENAC SODIUM
     Indication: BACK PAIN
     Dosage: 75 MG, QD
     Route: 030

REACTIONS (2)
  - Thrombosis mesenteric vessel [Recovering/Resolving]
  - Portal vein thrombosis [Recovering/Resolving]

NARRATIVE: CASE EVENT DATE: 20160416
